FAERS Safety Report 4556388-4 (Version None)
Quarter: 2005Q1

REPORT INFORMATION
  Report Type: 
  Country: None (occurrence: None)
  Receive Date: 20050105
  Receipt Date: 20040309
  Transmission Date: 20050727
  Serious: Yes (Life-Threatening)
  Sender: FDA-Public Use
  Company Number: 20040300220

PATIENT
  Age: 50 Year
  Sex: Male

DRUGS (5)
  1. ISOFLURANE [Suspect]
     Indication: ANAESTHESIA
  2. FENTANYL [Concomitant]
  3. PROPOFOL [Concomitant]
  4. ROCURONIUM [Concomitant]
  5. OXYGEN [Concomitant]

REACTIONS (1)
  - HYPERTHERMIA MALIGNANT [None]
